FAERS Safety Report 6707919-7 (Version None)
Quarter: 2010Q2

REPORT INFORMATION
  Report Type: 
  Country: None (occurrence: None)
  Receive Date: 20100503
  Receipt Date: 20090501
  Transmission Date: 20101027
  Serious: No
  Sender: FDA-Public Use
  Company Number: US-ASTRAZENECA-2009UW11170

PATIENT
  Age: 60 Year
  Sex: Female
  Weight: 52.6 kg

DRUGS (5)
  1. NEXIUM [Suspect]
     Indication: GASTROOESOPHAGEAL REFLUX DISEASE
     Route: 048
     Dates: start: 20010101
  2. LISINOPRIL [Concomitant]
     Indication: HYPERTENSION
  3. ZOLOFT [Concomitant]
     Indication: DEPRESSION
  4. VYTORIN [Concomitant]
     Indication: BLOOD CHOLESTEROL INCREASED
  5. ESTRADIOL [Concomitant]
     Indication: HORMONE REPLACEMENT THERAPY

REACTIONS (6)
  - ABDOMINAL PAIN [None]
  - ANAEMIA [None]
  - EATING DISORDER [None]
  - GASTROOESOPHAGEAL REFLUX DISEASE [None]
  - VITAMIN B12 DEFICIENCY [None]
  - WEIGHT DECREASED [None]
